FAERS Safety Report 5672789-5 (Version None)
Quarter: 2008Q1

REPORT INFORMATION
  Report Type: 
  Country: None (occurrence: None)
  Receive Date: 20080319
  Receipt Date: 20080104
  Transmission Date: 20080703
  Serious: Yes (Other)
  Sender: FDA-Public Use
  Company Number: US-KINGPHARMUSA00001-K200800019

PATIENT

DRUGS (2)
  1. ALTACE [Suspect]
     Indication: CORONARY ARTERY BYPASS
     Dosage: 2.5 MG, BID
     Route: 048
     Dates: start: 20060401
  2. VYTORIN [Concomitant]
     Indication: HYPERCHOLESTEROLAEMIA
     Dates: start: 20070401

REACTIONS (4)
  - DEAFNESS [None]
  - EAR DISCOMFORT [None]
  - INNER EAR INFLAMMATION [None]
  - TINNITUS [None]
